FAERS Safety Report 5424950-2 (Version None)
Quarter: 2007Q3

REPORT INFORMATION
  Report Type: 
  Country: None (occurrence: None)
  Receive Date: 20070824
  Receipt Date: 20070820
  Transmission Date: 20080115
  Serious: Yes (Death)
  Sender: FDA-Public Use
  Company Number: A0673072A

PATIENT

DRUGS (3)
  1. FLONASE [Suspect]
     Route: 045
  2. FLOVENT [Suspect]
     Indication: DRUG USE FOR UNKNOWN INDICATION
     Route: 055
  3. BLOOD PRESSURE MEDICATION [Concomitant]

REACTIONS (1)
  - DEATH [None]
